FAERS Safety Report 25005377 (Version 1)
Quarter: 2025Q1

REPORT INFORMATION
  Report Type: Report from Study
  Country: US (occurrence: US)
  Receive Date: 20250224
  Receipt Date: 20250224
  Transmission Date: 20250408
  Serious: Yes (Hospitalization)
  Sender: ACADIA PHARMACEUTICALS
  Company Number: US-ACADIA PHARMACEUTICALS INC.-ACA-2025-PIM-000946

PATIENT
  Age: 79 Year
  Sex: Male

DRUGS (11)
  1. NUPLAZID [Suspect]
     Active Substance: PIMAVANSERIN TARTRATE
     Indication: Parkinson^s disease
     Dosage: 34 MILLIGRAM, QD
     Route: 048
     Dates: start: 20241107
  2. NUPLAZID [Suspect]
     Active Substance: PIMAVANSERIN TARTRATE
     Indication: Psychotic disorder
  3. NUPLAZID [Suspect]
     Active Substance: PIMAVANSERIN TARTRATE
     Indication: Hallucination
  4. CYANOCOBALAMIN [Concomitant]
     Active Substance: CYANOCOBALAMIN
  5. VITAMIN D3 [Concomitant]
     Active Substance: CHOLECALCIFEROL
  6. CARBIDOPA\LEVODOPA [Concomitant]
     Active Substance: CARBIDOPA\LEVODOPA
  7. LISINOPRIL [Concomitant]
     Active Substance: LISINOPRIL
  8. OXYBUTYNIN [Concomitant]
     Active Substance: OXYBUTYNIN
  9. RIVASTIGMINE [Concomitant]
     Active Substance: RIVASTIGMINE
  10. SIMVASTATIN [Concomitant]
     Active Substance: SIMVASTATIN
  11. XARELTO [Concomitant]
     Active Substance: RIVAROXABAN

REACTIONS (4)
  - Adverse event [Recovered/Resolved]
  - Fall [Recovered/Resolved]
  - Product availability issue [Recovered/Resolved]
  - Therapy interrupted [Recovered/Resolved]

NARRATIVE: CASE EVENT DATE: 20250120
